FAERS Safety Report 23142519 (Version 1)
Quarter: 2023Q4

REPORT INFORMATION
  Report Type: Report from Study
  Country: CA (occurrence: None)
  Receive Date: 20231103
  Receipt Date: 20231103
  Transmission Date: 20240109
  Serious: Yes (Other)
  Sender: FDA-Public Use
  Company Number: 2023A248635

PATIENT
  Sex: Female

DRUGS (1)
  1. TAGRISSO [Suspect]
     Active Substance: OSIMERTINIB
     Indication: Non-small cell lung cancer stage I
     Route: 048
     Dates: start: 20221027

REACTIONS (5)
  - Toxicity to various agents [Unknown]
  - Syncope [Unknown]
  - Hypotension [Unknown]
  - Heart rate decreased [Unknown]
  - Diarrhoea [Unknown]
